FAERS Safety Report 5162596-4 (Version None)
Quarter: 2006Q4

REPORT INFORMATION
  Report Type: 
  Country: None (occurrence: None)
  Receive Date: 20061201
  Receipt Date: 20061120
  Transmission Date: 20070319
  Serious: Yes (Other)
  Sender: FDA-Public Use
  Company Number: 2006UW25611

PATIENT
  Age: 81 Year
  Sex: Male
  Weight: 76.7 kg

DRUGS (1)
  1. CASODEX [Suspect]
     Route: 048
     Dates: start: 20050701, end: 20060301

REACTIONS (3)
  - CARDIAC FAILURE [None]
  - CHRONIC LYMPHOCYTIC LEUKAEMIA [None]
  - INTRACARDIAC THROMBUS [None]
